FAERS Safety Report 10094557 (Version 1)
Quarter: 2014Q2

REPORT INFORMATION
  Report Type: Spontaneous
  Country: DK (occurrence: CA)
  Receive Date: 20140422
  Receipt Date: 20140422
  Transmission Date: 20141212
  Serious: Yes (Other)
  Sender: FDA-Public Use
  Company Number: CA-FRI-1000066660

PATIENT
  Age: 85 Year
  Sex: Female
  Weight: 80 kg

DRUGS (3)
  1. ESCITALOPRAM [Suspect]
     Dosage: 10 MG
     Route: 048
  2. LOSARTAN [Concomitant]
     Dosage: DAILY DOSE NOT REPORTED
  3. NIFEDIPINE [Concomitant]
     Dosage: DAILY DOSE NOT REPORTED

REACTIONS (2)
  - Gastrointestinal disorder [Recovered/Resolved]
  - Blood potassium decreased [Recovered/Resolved]
